FAERS Safety Report 23669553 (Version 1)
Quarter: 2024Q1

REPORT INFORMATION
  Report Type: Spontaneous
  Country: US (occurrence: None)
  Receive Date: 20240324
  Receipt Date: 20240324
  Transmission Date: 20240410
  Serious: Yes (Life-Threatening, Hospitalization, Disabling)
  Sender: FDA-Public Use
  Company Number: None

PATIENT
  Age: 60 Year
  Sex: Female
  Weight: 85.95 kg

DRUGS (7)
  1. TAMIFLU [Suspect]
     Active Substance: OSELTAMIVIR PHOSPHATE
     Indication: Influenza
     Dosage: OTHER QUANTITY : 10 TABLET(S);?FREQUENCY : TWICE A DAY;?
     Route: 048
  2. ARMOUR THYROID [Concomitant]
     Active Substance: THYROID, PORCINE
  3. OXYCONTIN [Concomitant]
  4. Multi-vitamin [Concomitant]
  5. Vitamin K [Concomitant]
  6. HYALURONIC ACID [Concomitant]
     Active Substance: HYALURONIC ACID
  7. VITAMIN D [Concomitant]
     Active Substance: VITAMIN D NOS

REACTIONS (2)
  - Liver transplant [None]
  - Acute hepatic failure [None]

NARRATIVE: CASE EVENT DATE: 20240308
